FAERS Safety Report 14575021 (Version 2)
Quarter: 2019Q1

REPORT INFORMATION
  Report Type: Spontaneous
  Country: US (occurrence: US)
  Receive Date: 20180227
  Receipt Date: 20190205
  Transmission Date: 20190417
  Serious: No
  Sender: FDA-Public Use
  Company Number: US-ROCHE-1995234

PATIENT
  Age: 53 Year
  Sex: Female

DRUGS (2)
  1. XOLAIR [Suspect]
     Active Substance: OMALIZUMAB
     Route: 058
     Dates: start: 20170914
  2. XOLAIR [Suspect]
     Active Substance: OMALIZUMAB
     Indication: ASTHMA
     Dosage: 2 SHOTS, EVERY 2 WEEKS
     Route: 058
     Dates: start: 201702

REACTIONS (6)
  - Pruritus [Unknown]
  - Chest discomfort [Unknown]
  - Throat tightness [Unknown]
  - Dyspnoea [Unknown]
  - Bronchitis [Unknown]
  - Mental disorder [Unknown]

NARRATIVE: CASE EVENT DATE: 20170914
